FAERS Safety Report 4317279-7 (Version None)
Quarter: 2004Q1

REPORT INFORMATION
  Report Type: 
  Country: None (occurrence: None)
  Receive Date: 20040305
  Receipt Date: 20040219
  Transmission Date: 20041129
  Serious: Yes (Hospitalization, Other)
  Sender: FDA-Public Use
  Company Number: HQ0026323APR2001

PATIENT
  Age: 3 Year
  Sex: Male

DRUGS (1)
  1. REFACTO [Suspect]
     Indication: PROPHYLAXIS
     Dosage: 500 IU 3X PER 1 WK
     Dates: start: 20000812

REACTIONS (3)
  - CATHETER RELATED INFECTION [None]
  - DRUG SPECIFIC ANTIBODY PRESENT [None]
  - STAPHYLOCOCCAL INFECTION [None]
